FAERS Safety Report 9619458 (Version 1)
Quarter: 2013Q4

REPORT INFORMATION
  Report Type: Spontaneous
  Country: DE (occurrence: DE)
  Receive Date: 20131014
  Receipt Date: 20131014
  Transmission Date: 20140711
  Serious: Yes (Death)
  Sender: FDA-Public Use
  Company Number: DE-CUBIST-2009S1000578

PATIENT
  Sex: Male

DRUGS (1)
  1. CUBICIN [Suspect]
     Indication: INFECTION
     Route: 042
     Dates: start: 2009, end: 2009

REACTIONS (1)
  - Malignant neoplasm progression [Fatal]
